FAERS Safety Report 7216849-6 (Version None)
Quarter: 2011Q1

REPORT INFORMATION
  Report Type: 
  Country: None (occurrence: None)
  Receive Date: 20110104
  Receipt Date: 20110104
  Transmission Date: 20110831
  Serious: No
  Sender: FDA-Public Use
  Company Number: None

PATIENT
  Age: 61 Year
  Sex: Female
  Weight: 70.3075 kg

DRUGS (2)
  1. EVISTA [Suspect]
     Indication: PROPHYLAXIS
     Dosage: 60 MG ONE A DAY
     Dates: start: 20101206, end: 20101222
  2. EVISTA [Suspect]
     Indication: BREAST CANCER
     Dosage: 60 MG ONE A DAY
     Dates: start: 20101206, end: 20101222

REACTIONS (1)
  - ALOPECIA [None]
